FAERS Safety Report 6851920-X (Version None)
Quarter: 2010Q3

REPORT INFORMATION
  Report Type: 
  Country: None (occurrence: None)
  Receive Date: 20100717
  Receipt Date: 20080315
  Transmission Date: 20110219
  Serious: Yes (Other)
  Sender: FDA-Public Use
  Company Number: US-PFIZER INC-2008007871

PATIENT
  Sex: Female
  Weight: 62.6 kg

DRUGS (17)
  1. CHANTIX [Suspect]
     Indication: SMOKING CESSATION THERAPY
     Dates: start: 20080101, end: 20080117
  2. ACETYLSALICYLIC ACID [Concomitant]
  3. VITAMINS [Concomitant]
  4. OTHER DERMATOLOGICAL PREPARATIONS [Concomitant]
  5. VITAMIN E [Concomitant]
  6. CALCIUM WITH VITAMIN D [Concomitant]
  7. SELENIUM [Concomitant]
  8. VITAMIN C [Concomitant]
  9. VITAMIN B COMPLEX CAP [Concomitant]
  10. TYLENOL [Concomitant]
  11. PRILOSEC [Concomitant]
  12. MECLIZINE [Concomitant]
  13. LEVAQUIN [Concomitant]
  14. BIAXIN [Concomitant]
     Dates: start: 20050301, end: 20050301
  15. ACTONEL [Concomitant]
  16. IBANDRONATE SODIUM [Concomitant]
  17. AZITHROMYCIN [Concomitant]
     Dates: start: 20071001, end: 20071001

REACTIONS (15)
  - ABNORMAL DREAMS [None]
  - ANXIETY [None]
  - BURNING SENSATION [None]
  - DERMATITIS [None]
  - DRUG HYPERSENSITIVITY [None]
  - ERYTHEMA [None]
  - FEELING ABNORMAL [None]
  - HYPERACUSIS [None]
  - HYPERAESTHESIA [None]
  - NAUSEA [None]
  - PRURITUS [None]
  - RASH MACULAR [None]
  - SENSORY DISTURBANCE [None]
  - SWELLING FACE [None]
  - WEIGHT INCREASED [None]
